FAERS Safety Report 10249409 (Version 1)
Quarter: 2014Q2

REPORT INFORMATION
  Report Type: Spontaneous
  Country: SE (occurrence: SE)
  Receive Date: 20140620
  Receipt Date: 20140620
  Transmission Date: 20141212
  Serious: Yes (Hospitalization)
  Sender: FDA-Public Use
  Company Number: SE-SA-2014SA078973

PATIENT
  Age: 83 Year
  Sex: Female

DRUGS (6)
  1. MULTAQ [Suspect]
     Indication: PRODUCT USED FOR UNKNOWN INDICATION
     Dosage: FILMDRAGERAD TABLETT
     Route: 065
  2. WARAN [Concomitant]
     Dates: start: 20120821
  3. CANDESARTAN CILEXETIL/HYDROCHLOROTHIAZIDE [Concomitant]
     Dosage: 16 MG/12.5 MG
     Dates: start: 20140404
  4. OMEPRAZOLE [Concomitant]
     Dates: start: 20131030
  5. BRICANYL TURBUHALER [Concomitant]
     Dosage: INHALATIONPULVER
  6. ACETYLCYSTEINE [Concomitant]
     Dosage: BRUSTABLETT

REACTIONS (1)
  - Dizziness [Unknown]
